FAERS Safety Report 9845324 (Version 1)
Quarter: 2014Q1

REPORT INFORMATION
  Report Type: Spontaneous
  Country: CH (occurrence: CH)
  Receive Date: 20140127
  Receipt Date: 20140127
  Transmission Date: 20141002
  Serious: Yes (Death)
  Sender: FDA-Public Use
  Company Number: CH-BAYER-2014-009353

PATIENT
  Age: 18 Year
  Sex: Male

DRUGS (6)
  1. NEXAVAR [Suspect]
     Indication: HEPATOCELLULAR CARCINOMA
     Dosage: 2X200 MG PER DAY
     Route: 048
     Dates: start: 20131018, end: 20131023
  2. PANTOZOL [Suspect]
     Dosage: 40 MG, QD
     Route: 048
     Dates: start: 201310, end: 20131102
  3. MST [MORPHINE SULFATE] [Suspect]
     Dosage: 20 MG, 2 PER DAY
     Route: 048
     Dates: start: 201310, end: 20131102
  4. PRIMPERAN [Suspect]
     Dosage: 10 MG, QD
     Route: 048
     Dates: start: 201310, end: 20131102
  5. ZOFRAN [Suspect]
     Dosage: 4 MG, QD
     Route: 048
     Dates: start: 201310, end: 20131102
  6. MOVICOL [Suspect]
     Dosage: 1 DF, QD
     Route: 048
     Dates: start: 201310, end: 20131102

REACTIONS (3)
  - Hepatocellular injury [Fatal]
  - Hepatic failure [Fatal]
  - Renal failure acute [Fatal]
